FAERS Safety Report 9496718 (Version 2)
Quarter: 2013Q3

REPORT INFORMATION
  Report Type: Spontaneous
  Country: DE (occurrence: DE)
  Receive Date: 20130904
  Receipt Date: 20130925
  Transmission Date: 20140515
  Serious: Yes (Life-Threatening, Hospitalization, Other)
  Sender: FDA-Public Use
  Company Number: DE-UCBSA-096863

PATIENT
  Age: 21 Year
  Sex: Female

DRUGS (7)
  1. KEPPRA [Suspect]
     Indication: CONVULSION
     Dosage: DAILY DOSE: 4000 MG
     Route: 042
     Dates: start: 20120328
  2. PROPOFOL [Suspect]
     Indication: STATUS EPILEPTICUS
     Dosage: 200 MG/HOUR (200ML,CONTINUOUS)
     Route: 042
     Dates: start: 201204, end: 201204
  3. MAGNESIUM [Suspect]
     Dosage: DISCONTINUED AFTER 8 HOURS, UNKNOWN DOSE
  4. VALPROATE [Concomitant]
     Indication: CONVULSION
     Dosage: DAILY DOSE: 780MG/DAY
  5. VALPROATE [Concomitant]
     Indication: CONVULSION
  6. TOPIRAMATE [Concomitant]
     Indication: CONVULSION
     Dosage: DAILY DOSE:250 MG/DAY
  7. CLONAZEPAM [Concomitant]
     Indication: CONVULSION
     Dosage: DAILY DOSE: 9 MG/DAY

REACTIONS (3)
  - Status epilepticus [Recovering/Resolving]
  - Atrioventricular block second degree [Recovered/Resolved]
  - Overdose [Unknown]
